FAERS Safety Report 9373098 (Version 2)
Quarter: 2013Q3

REPORT INFORMATION
  Report Type: Spontaneous
  Country: US (occurrence: US)
  Receive Date: 20130627
  Receipt Date: 20130715
  Transmission Date: 20140515
  Serious: Yes (Other)
  Sender: FDA-Public Use
  Company Number: US-ROCHE-1242099

PATIENT
  Age: 24 Year
  Sex: Male
  Weight: 99.88 kg

DRUGS (8)
  1. XOLAIR [Suspect]
     Indication: ASTHMA
     Route: 058
     Dates: start: 20130514, end: 20130625
  2. EPIPEN [Concomitant]
     Dosage: 2-PAK 0.3 MG/0.3ML 1 INJ
     Route: 065
     Dates: start: 20130506
  3. XOPENEX [Concomitant]
     Dosage: 1.25MG/3ML 1 INH
     Route: 065
     Dates: start: 20130320
  4. ZYRTEC [Concomitant]
     Route: 065
     Dates: start: 20121121
  5. SYMBICORT [Concomitant]
     Dosage: 160, 4.5 MCG/ACT 2 PUFFS TWICE DAILY RINSE MOUTH AFTER
     Route: 065
     Dates: start: 20121121
  6. SINGULAIR [Concomitant]
     Route: 065
     Dates: start: 20121121
  7. NEXIUM [Concomitant]
     Dosage: 2CAP DAILY
     Route: 065
     Dates: start: 20121121
  8. ALBUTEROL SULFATE [Concomitant]
     Dosage: HFA 108 (90 BASE) 2 PUFFS EVERY SIX HOURS PRN
     Route: 065
     Dates: start: 20121121

REACTIONS (4)
  - Syncope [Recovering/Resolving]
  - Urticaria [Recovered/Resolved]
  - Nausea [Unknown]
  - Hyperhidrosis [Unknown]
